FAERS Safety Report 4952019-X (Version None)
Quarter: 2006Q1

REPORT INFORMATION
  Report Type: 
  Country: None (occurrence: None)
  Receive Date: 20060322
  Receipt Date: 20060322
  Transmission Date: 20060701
  Serious: Yes (Other)
  Sender: FDA-Public Use
  Company Number: None

PATIENT
  Age: 11 Year
  Sex: Female
  Weight: 41.7309 kg

DRUGS (5)
  1. GEODON [Suspect]
     Indication: ATTENTION DEFICIT/HYPERACTIVITY DISORDER
     Dosage: SEE IMAGE
     Dates: start: 20060302, end: 20060311
  2. GEODON [Suspect]
     Indication: BIPOLAR DISORDER
     Dosage: SEE IMAGE
     Dates: start: 20060302, end: 20060311
  3. ADDERALL XR 10 [Concomitant]
  4. DEPAKOTE [Concomitant]
  5. DEXEDRINE [Concomitant]

REACTIONS (3)
  - DYSTONIA [None]
  - MUSCLE TWITCHING [None]
  - SWOLLEN TONGUE [None]
